FAERS Safety Report 5384843-6 (Version None)
Quarter: 2007Q3

REPORT INFORMATION
  Report Type: 
  Country: None (occurrence: None)
  Receive Date: 20070706
  Receipt Date: 20070525
  Transmission Date: 20080115
  Serious: No
  Sender: FDA-Public Use
  Company Number: PHEH2007US07960

PATIENT
  Sex: Female

DRUGS (2)
  1. TEKTURNA [Suspect]
     Indication: HYPERTENSION
     Dosage: 150 MG; QD;ORAL
     Route: 048
     Dates: start: 20070524
  2. BENICAR HCT [Concomitant]

REACTIONS (2)
  - DIZZINESS [None]
  - VOMITING [None]
